FAERS Safety Report 6551096-2 (Version None)
Quarter: 2010Q1

REPORT INFORMATION
  Report Type: 
  Country: None (occurrence: None)
  Receive Date: 20100121
  Receipt Date: 20100108
  Transmission Date: 20100710
  Serious: Yes (Death, Disabling, Other)
  Sender: FDA-Public Use
  Company Number: 2009003954

PATIENT
  Age: 61 Year
  Sex: Female

DRUGS (3)
  1. ERLOTINIB HYDROCHLORIDE [Suspect]
     Indication: ADENOCARCINOMA PANCREAS
     Dosage: 100 MG, ORAL
     Route: 048
     Dates: start: 20090818
  2. GEMCITABINE HYDROCHLORIDE (GEMCITABINE HYDROCHLORIDE) (INJECTION FOR I [Suspect]
     Indication: PANCREATIC CARCINOMA
     Dosage: 1000MG/M2, INTRAVENOUS
     Route: 042
     Dates: start: 20090818
  3. PANITUMUMAB [Suspect]
     Indication: PANCREATIC CARCINOMA
     Dosage: 4MG/KG, INTRAVENOUS
     Route: 042
     Dates: start: 20090818

REACTIONS (12)
  - ACUTE RESPIRATORY DISTRESS SYNDROME [None]
  - ANAEMIA [None]
  - BLOOD BICARBONATE DECREASED [None]
  - CARBON DIOXIDE DECREASED [None]
  - DISEASE PROGRESSION [None]
  - DYSPNOEA [None]
  - GENERAL PHYSICAL HEALTH DETERIORATION [None]
  - HYPOXIA [None]
  - METASTASES TO LUNG [None]
  - ORGAN FAILURE [None]
  - PNEUMONIA [None]
  - RENAL FAILURE [None]
